FAERS Safety Report 5676161-3 (Version None)
Quarter: 2008Q1

REPORT INFORMATION
  Report Type: 
  Country: None (occurrence: None)
  Receive Date: 20080321
  Receipt Date: 20080313
  Transmission Date: 20080703
  Serious: Yes (Life-Threatening)
  Sender: FDA-Public Use
  Company Number: US-TYCO HEALTHCARE/MALLINCKRODT-T200800546

PATIENT

DRUGS (1)
  1. OPTIRAY 300 [Suspect]
     Dosage: 125 ML, SINGLE
     Route: 042
     Dates: start: 20080312, end: 20080312

REACTIONS (1)
  - CARDIO-RESPIRATORY ARREST [None]
